FAERS Safety Report 6034559-8 (Version None)
Quarter: 2009Q1

REPORT INFORMATION
  Report Type: 
  Country: None (occurrence: None)
  Receive Date: 20090108
  Receipt Date: 20090108
  Transmission Date: 20090719
  Serious: No
  Sender: FDA-Public Use
  Company Number: None

PATIENT
  Sex: Female
  Weight: 50.5 kg

DRUGS (3)
  1. ELOXATIN [Suspect]
     Dosage: 125 MG
     Dates: end: 20081208
  2. FLUOROURACIL [Suspect]
     Dosage: 4116 MG
     Dates: end: 20081208
  3. LEUCOVORIN CALCIUM [Suspect]
     Dosage: 294 MG
     Dates: end: 20081208

REACTIONS (1)
  - NEUTROPHIL COUNT DECREASED [None]
